FAERS Safety Report 17105791 (Version 2)
Quarter: 2019Q4

REPORT INFORMATION
  Report Type: Report from Study
  Country: US (occurrence: US)
  Receive Date: 20191203
  Receipt Date: 20191220
  Transmission Date: 20200122
  Serious: No
  Sender: FDA-Public Use
  Company Number: US-IPSEN BIOPHARMACEUTICALS, INC.-2019-23642

PATIENT
  Age: 81 Year

DRUGS (1)
  1. DYSPORT [Suspect]
     Active Substance: ABOBOTULINUMTOXINA
     Indication: TORTICOLLIS
     Dosage: UNITS: UNSPECIFIED (RETROCOLLIS 50, TORTICOLLIS 100, LATEROCOLLIS 150)
     Route: 065

REACTIONS (2)
  - Muscle spasticity [Unknown]
  - Therapeutic response shortened [Unknown]
